FAERS Safety Report 5553413-9 (Version None)
Quarter: 2007Q4

REPORT INFORMATION
  Report Type: 
  Country: None (occurrence: None)
  Receive Date: 20071213
  Receipt Date: 20071210
  Transmission Date: 20080405
  Serious: Yes (Other)
  Sender: FDA-Public Use
  Company Number: ES-BRISTOL-MYERS SQUIBB COMPANY-14009401

PATIENT
  Age: 15 Year
  Sex: Female

DRUGS (3)
  1. CISPLATIN [Suspect]
     Indication: GERM CELL CANCER
  2. ETOPOSIDE [Suspect]
     Indication: GERM CELL CANCER
  3. BLEOMYCIN [Suspect]
     Indication: GERM CELL CANCER

REACTIONS (1)
  - CEREBRAL VENOUS THROMBOSIS [None]
